FAERS Safety Report 8257907-7 (Version None)
Quarter: 2012Q2

REPORT INFORMATION
  Report Type: 
  Country: None (occurrence: None)
  Receive Date: 20120404
  Receipt Date: 20120328
  Transmission Date: 20120825
  Serious: Yes (Other)
  Sender: FDA-Public Use
  Company Number: US-PFIZER INC-2012080519

PATIENT

DRUGS (1)
  1. LYRICA [Suspect]
     Dosage: 50 MG, 3X/DAY FOR 2 DAYS

REACTIONS (1)
  - DYSKINESIA [None]
